FAERS Safety Report 7033123-1 (Version None)
Quarter: 2010Q4

REPORT INFORMATION
  Report Type: 
  Country: None (occurrence: None)
  Receive Date: 20101004
  Receipt Date: 20100920
  Transmission Date: 20110411
  Serious: Yes (Other)
  Sender: FDA-Public Use
  Company Number: AUR-APL-2010-02338

PATIENT
  Sex: Female
  Weight: 56.6996 kg

DRUGS (5)
  1. SIMVASTATIN [Suspect]
     Indication: BLOOD CHOLESTEROL INCREASED
     Dosage: 1 TABLET-DAILY-ORAL
     Route: 048
     Dates: start: 20100706
  2. ATIVAN [Concomitant]
  3. ESTRADIOL [Concomitant]
  4. MAPROTILINE [Concomitant]
  5. MULTI-VITAMIN [Concomitant]

REACTIONS (1)
  - CONTUSION [None]
